FAERS Safety Report 7933184-9 (Version None)
Quarter: 2011Q4

REPORT INFORMATION
  Report Type: 
  Country: None (occurrence: None)
  Receive Date: 20111121
  Receipt Date: 20111121
  Transmission Date: 20120403
  Serious: Yes (Hospitalization)
  Sender: FDA-Public Use
  Company Number: None

PATIENT
  Sex: Male
  Weight: 59.4212 kg

DRUGS (8)
  1. BENDAMUSTINE 95MG [Suspect]
     Indication: MANTLE CELL LYMPHOMA
     Dosage: 95MG ONCE IV
     Route: 042
     Dates: start: 20110817
  2. AMLODIPINE [Concomitant]
  3. ATIVAN [Concomitant]
  4. GRALAPRIL [Concomitant]
  5. METOPROLOL TARTRATE [Concomitant]
  6. COMPAZINE [Concomitant]
  7. WARFARIN SODIUM [Concomitant]
  8. SIMVASTATIN [Concomitant]

REACTIONS (3)
  - OEDEMA PERIPHERAL [None]
  - CELLULITIS [None]
  - THROMBOPHLEBITIS SEPTIC [None]
